FAERS Safety Report 7084902-6 (Version None)
Quarter: 2010Q4

REPORT INFORMATION
  Report Type: 
  Country: None (occurrence: None)
  Receive Date: 20101105
  Receipt Date: 20101027
  Transmission Date: 20110411
  Serious: Yes (Other)
  Sender: FDA-Public Use
  Company Number: US-TEVA-253156USA

PATIENT
  Sex: Male
  Weight: 90.8 kg

DRUGS (4)
  1. AMOXICILLIN 250 MG + 500 MG CAPSULES [Suspect]
     Indication: OROPHARYNGEAL PAIN
  2. DEXILANT [Suspect]
     Indication: GASTROOESOPHAGEAL REFLUX DISEASE
     Route: 048
     Dates: start: 20100917
  3. DEXILANT [Suspect]
     Indication: LARYNGEAL ULCERATION
  4. MULTI-VITAMINS [Concomitant]

REACTIONS (1)
  - SUDDEN HEARING LOSS [None]
